FAERS Safety Report 6748124-8 (Version None)
Quarter: 2010Q2

REPORT INFORMATION
  Report Type: 
  Country: None (occurrence: None)
  Receive Date: 20100531
  Receipt Date: 20100525
  Transmission Date: 20101027
  Serious: Yes (Hospitalization)
  Sender: FDA-Public Use
  Company Number: US-BRISTOL-MYERS SQUIBB COMPANY-15121783

PATIENT
  Age: 82 Year
  Sex: Male
  Weight: 104 kg

DRUGS (3)
  1. CISPLATIN [Suspect]
     Indication: OESOPHAGEAL ADENOCARCINOMA
     Dosage: INTERRUPTED ON 11MAY10;25MG\M2DAY1,8,15,22,29,36
     Dates: start: 20100427
  2. TAXOL [Suspect]
     Indication: OESOPHAGEAL ADENOCARCINOMA
     Dosage: INTERRUPTED ON 11MAY10.50MG\M2DAY 1,8,,15,22,29,36
     Dates: start: 20100427
  3. RADIATION THERAPY [Suspect]
     Indication: OESOPHAGEAL CARCINOMA

REACTIONS (4)
  - DEHYDRATION [None]
  - DIARRHOEA [None]
  - DYSPHAGIA [None]
  - FATIGUE [None]
